FAERS Safety Report 16912724 (Version 1)
Quarter: 2019Q4

REPORT INFORMATION
  Report Type: Spontaneous
  Country: CA (occurrence: CA)
  Receive Date: 20191014
  Receipt Date: 20191014
  Transmission Date: 20200122
  Serious: Yes (Disabling)
  Sender: FDA-Public Use
  Company Number: CA-TEVA-2019-CA-1119838

PATIENT
  Age: 76 Year
  Sex: Male
  Weight: 64 kg

DRUGS (5)
  1. TEVA-ROSUVASTATIN [Suspect]
     Active Substance: ROSUVASTATIN
     Indication: DYSLIPIDAEMIA
     Dosage: 5 MILLIGRAM DAILY;
     Route: 048
  2. SALBUTAMOL [Concomitant]
     Active Substance: ALBUTEROL
  3. ASA [Concomitant]
     Active Substance: ASPIRIN
  4. VITAMIN B12 [Concomitant]
     Active Substance: CYANOCOBALAMIN
  5. SYMBICORT [Concomitant]
     Active Substance: BUDESONIDE\FORMOTEROL FUMARATE DIHYDRATE

REACTIONS (1)
  - Erectile dysfunction [Recovered/Resolved]
